FAERS Safety Report 12494785 (Version 1)
Quarter: 2016Q2

REPORT INFORMATION
  Report Type: Spontaneous
  Country: SE (occurrence: SE)
  Receive Date: 20160624
  Receipt Date: 20160624
  Transmission Date: 20160815
  Serious: Yes (Hospitalization, Other)
  Sender: FDA-Public Use
  Company Number: SE-ASTRAZENECA-2016SE66886

PATIENT
  Age: 67 Year
  Sex: Male
  Weight: 69 kg

DRUGS (9)
  1. METOPROLOL. [Concomitant]
     Active Substance: METOPROLOL
  2. RAMIPRIL. [Concomitant]
     Active Substance: RAMIPRIL
  3. ISOSORBIDE MONONITRATE. [Concomitant]
     Active Substance: ISOSORBIDE MONONITRATE
  4. NITROLINGUAL [Concomitant]
     Active Substance: NITROGLYCERIN
  5. FOLACIN [Concomitant]
     Active Substance: FOLIC ACID
  6. BRILIQUE [Suspect]
     Active Substance: TICAGRELOR
     Indication: PERCUTANEOUS CORONARY INTERVENTION
     Route: 048
     Dates: start: 20160216, end: 20160429
  7. ALFUZOSIN [Concomitant]
     Active Substance: ALFUZOSIN
  8. ATORVASTATIN [Concomitant]
     Active Substance: ATORVASTATIN
  9. TROMBYL [Concomitant]
     Active Substance: ASPIRIN

REACTIONS (3)
  - Cholecystitis [Unknown]
  - Hemiparesis [Unknown]
  - Epidural haemorrhage [Not Recovered/Not Resolved]

NARRATIVE: CASE EVENT DATE: 201603
